FAERS Safety Report 17912516 (Version 1)
Quarter: 2020Q2

REPORT INFORMATION
  Report Type: Spontaneous
  Country: CA (occurrence: CA)
  Receive Date: 20200618
  Receipt Date: 20200618
  Transmission Date: 20200714
  Serious: Yes (Other)
  Sender: FDA-Public Use
  Company Number: CA-SAMSUNG BIOEPIS-SB-2020-19970

PATIENT
  Age: 64 Year
  Sex: Female
  Weight: 60 kg

DRUGS (3)
  1. INFLIXIMAB [Suspect]
     Active Substance: INFLIXIMAB
     Indication: COLITIS ULCERATIVE
     Route: 042
  2. PREDNISONE. [Concomitant]
     Active Substance: PREDNISONE
     Indication: PRODUCT USED FOR UNKNOWN INDICATION
     Route: 065
  3. POTASSIUM CHLORIDE. [Concomitant]
     Active Substance: POTASSIUM CHLORIDE
     Indication: PRODUCT USED FOR UNKNOWN INDICATION
     Dosage: UNKNOWN
     Route: 048

REACTIONS (15)
  - Arthropathy [Recovered/Resolved]
  - Blood pressure fluctuation [Recovered/Resolved]
  - Hot flush [Recovered/Resolved]
  - Drug hypersensitivity [Recovered/Resolved]
  - Heart rate irregular [Recovered/Resolved]
  - Rash [Recovered/Resolved]
  - Urticaria [Recovered/Resolved]
  - Chest discomfort [Recovered/Resolved]
  - Vomiting [Recovered/Resolved]
  - Dyspnoea [Recovered/Resolved]
  - Joint injury [Recovered/Resolved]
  - Ankle fracture [Recovered/Resolved]
  - Condition aggravated [Recovered/Resolved]
  - Ear infection [Recovered/Resolved]
  - Pruritus [Recovered/Resolved]
